FAERS Safety Report 9115230 (Version 1)
Quarter: 2013Q1

REPORT INFORMATION
  Report Type: Spontaneous
  Country: US (occurrence: US)
  Receive Date: 20130225
  Receipt Date: 20130225
  Transmission Date: 20140127
  Serious: No
  Sender: FDA-Public Use
  Company Number: US-B.I. PHARMACEUTICALS,INC./RIDGEFIELD-2013-BI-03798PF

PATIENT
  Sex: Female

DRUGS (4)
  1. SPIRIVA [Suspect]
  2. FLOVENT [Suspect]
  3. SINGULAIR [Suspect]
  4. VENTOLIN [Concomitant]

REACTIONS (1)
  - Adverse event [Unknown]
